FAERS Safety Report 12659870 (Version 1)
Quarter: 2016Q3

REPORT INFORMATION
  Report Type: Spontaneous
  Country: US (occurrence: US)
  Receive Date: 20160817
  Receipt Date: 20160817
  Transmission Date: 20161109
  Serious: No
  Sender: FDA-Public Use
  Company Number: US-SHIRE-2016DX000096

PATIENT

DRUGS (2)
  1. KALBITOR [Suspect]
     Active Substance: ECALLANTIDE
     Indication: HEREDITARY ANGIOEDEMA
     Dosage: UNKNOWN
     Route: 065
     Dates: start: 20160324, end: 20160324
  2. KALBITOR [Suspect]
     Active Substance: ECALLANTIDE
     Dosage: UNKNOWN
     Route: 065
     Dates: start: 2015

REACTIONS (3)
  - Rash [Unknown]
  - Urticaria [Unknown]
  - Pain [Unknown]

NARRATIVE: CASE EVENT DATE: 20160324
